FAERS Safety Report 4647654-2 (Version None)
Quarter: 2005Q2

REPORT INFORMATION
  Report Type: 
  Country: None (occurrence: None)
  Receive Date: 20050426
  Receipt Date: 20050413
  Transmission Date: 20051028
  Serious: Yes (Other)
  Sender: FDA-Public Use
  Company Number: 2005059035

PATIENT
  Age: 76 Year
  Sex: Female

DRUGS (7)
  1. CELEBREX [Suspect]
     Indication: OSTEOARTHRITIS
     Dosage: 100 MG (100 MG, 1 IN 1 D) ORAL
     Route: 048
  2. AMITRIPTYLINE HYDROCHLORIDE [Concomitant]
  3. CLORAZEPATE DIPOTASSIUM [Concomitant]
  4. TRAZODONE HYDROCHLORIDE [Concomitant]
  5. MEPROBAMATE [Concomitant]
  6. RANITIDINE HYDROCHLORIDE [Concomitant]
  7. PARACETAMOL [Concomitant]

REACTIONS (4)
  - ANGINA PECTORIS [None]
  - ARRHYTHMIA [None]
  - HYPERTENSION [None]
  - OEDEMA [None]
